FAERS Safety Report 10460279 (Version 1)
Quarter: 2014Q3

REPORT INFORMATION
  Report Type: Spontaneous
  Country: DE (occurrence: DE)
  Receive Date: 20140917
  Receipt Date: 20140917
  Transmission Date: 20150326
  Serious: Yes (Other)
  Sender: FDA-Public Use
  Company Number: DE-PFIZER INC-2014256618

PATIENT
  Age: 35 Year
  Sex: Female

DRUGS (2)
  1. ZIPRASIDONE HCL [Suspect]
     Active Substance: ZIPRASIDONE HYDROCHLORIDE
     Dosage: UNK
  2. VALDOXAN [Suspect]
     Active Substance: AGOMELATINE
     Dosage: UNK

REACTIONS (4)
  - Back pain [Unknown]
  - Ankylosing spondylitis [Unknown]
  - Arthralgia [Unknown]
  - Blood test abnormal [Unknown]
